FAERS Safety Report 10476680 (Version 2)
Quarter: 2014Q4

REPORT INFORMATION
  Report Type: Spontaneous
  Country: GB (occurrence: None)
  Receive Date: 20140923
  Receipt Date: 20141009
  Transmission Date: 20150528
  Serious: Yes (Other)
  Sender: FDA-Public Use
  Company Number: GB-DEXPHARM-20140600

PATIENT
  Sex: Male

DRUGS (1)
  1. AMITRIPTYLINE [Suspect]
     Active Substance: AMITRIPTYLINE
     Indication: SPINAL COMPRESSION FRACTURE
     Dosage: DOSAGE TEXT: 40 MG, 1/DAY?DOSE: 40 MG MILLIGRAM(S)?SEP. DOSAGES/ INTERVAL: 1 IN 1 DAYS
     Route: 048

REACTIONS (7)
  - Coordination abnormal [None]
  - Depressed mood [None]
  - Hypoaesthesia [None]
  - Muscular weakness [None]
  - Fatigue [None]
  - Impaired driving ability [None]
  - Disturbance in attention [None]
